FAERS Safety Report 16705970 (Version 3)
Quarter: 2021Q1

REPORT INFORMATION
  Report Type: Report from Study
  Country: DE (occurrence: DE)
  Receive Date: 20190815
  Receipt Date: 20210205
  Transmission Date: 20210419
  Serious: No
  Sender: FDA-Public Use
  Company Number: DE-SA-2019SA128329

PATIENT
  Age: 83 Year
  Sex: Male
  Weight: 73.3 kg

DRUGS (9)
  1. CALCIUM [Concomitant]
     Active Substance: CALCIUM
     Indication: PROPHYLAXIS
     Dosage: 500 MG
     Route: 048
  2. ASPIRIN. [Concomitant]
     Active Substance: ASPIRIN
     Indication: CORONARY ARTERY DISEASE
     Dosage: 100 MG
     Route: 048
     Dates: start: 20190414
  3. PANTOPRAZOL [PANTOPRAZOLE] [Concomitant]
     Active Substance: PANTOPRAZOLE
     Indication: PROPHYLAXIS AGAINST GASTROINTESTINAL ULCER
     Dosage: 20 MG
     Route: 048
  4. CABAZITAXEL [Suspect]
     Active Substance: CABAZITAXEL
     Indication: PROSTATE CANCER METASTATIC
     Dosage: 20 MG/M2, QCY
     Route: 042
     Dates: start: 20190411, end: 20190411
  5. CABAZITAXEL [Suspect]
     Active Substance: CABAZITAXEL
     Dosage: 20 MG/M2, QCY
     Route: 042
     Dates: start: 20190502, end: 20190502
  6. RAMIPRIL. [Concomitant]
     Active Substance: RAMIPRIL
     Indication: HYPERTENSION
     Dosage: 5 MG
     Route: 048
  7. GRANISETRON [Concomitant]
     Active Substance: GRANISETRON
     Indication: PROPHYLAXIS OF NAUSEA AND VOMITING
     Dosage: 2 MG
     Route: 048
  8. DENOSUMAB [Concomitant]
     Active Substance: DENOSUMAB
     Dosage: 120 MG
     Route: 048
  9. PREDNISOLONE. [Concomitant]
     Active Substance: PREDNISOLONE
     Dosage: 10 MG
     Route: 048

REACTIONS (4)
  - Syncope [Recovered/Resolved]
  - Diarrhoea [Recovered/Resolved]
  - Atrial tachycardia [Recovered/Resolved]
  - Erythema [Recovered/Resolved]

NARRATIVE: CASE EVENT DATE: 20190413
